FAERS Safety Report 5094457-3 (Version None)
Quarter: 2006Q3

REPORT INFORMATION
  Report Type: 
  Country: None (occurrence: None)
  Receive Date: 20060731
  Receipt Date: 20060420
  Transmission Date: 20061208
  Serious: No
  Sender: FDA-Public Use
  Company Number: 2006PV012478

PATIENT
  Age: 68 Year
  Sex: Female
  Weight: 88.4514 kg

DRUGS (5)
  1. BYETTA [Suspect]
     Indication: DIABETES MELLITUS NON-INSULIN-DEPENDENT
     Dosage: 5 MCG; BID; SC
     Route: 058
     Dates: start: 20060413
  2. AVANDIA [Concomitant]
  3. GLIPIZIDE [Concomitant]
  4. NEXIUM [Concomitant]
  5. AMITRIPTYLINE HCL [Concomitant]

REACTIONS (4)
  - ASTHENIA [None]
  - BLOOD GLUCOSE DECREASED [None]
  - BLOOD GLUCOSE INCREASED [None]
  - INJECTION SITE PAIN [None]
